FAERS Safety Report 7475224-X (Version None)
Quarter: 2011Q2

REPORT INFORMATION
  Report Type: 
  Country: None (occurrence: None)
  Receive Date: 20110505
  Receipt Date: 20110218
  Transmission Date: 20111010
  Serious: Yes (Hospitalization)
  Sender: FDA-Public Use
  Company Number: GB-ACCORD-008155

PATIENT
  Age: 7 Year
  Sex: Female

DRUGS (4)
  1. SIMVASTATIN [Suspect]
     Indication: HYPERCHOLESTEROLAEMIA
     Dosage: 40.00 MG-1.00 PER ORAL
     Route: 048
     Dates: start: 20090401, end: 20110126
  2. LISINOPRIL [Concomitant]
  3. CITALOPRAM HYDROBROMIDE [Concomitant]
  4. ADIZEM (ADIZEM) [Concomitant]

REACTIONS (3)
  - SINUS ARRHYTHMIA [None]
  - CHEST PAIN [None]
  - RHABDOMYOLYSIS [None]
